FAERS Safety Report 12733708 (Version 1)
Quarter: 2016Q3

REPORT INFORMATION
  Report Type: Spontaneous
  Country: US (occurrence: US)
  Receive Date: 20160912
  Receipt Date: 20160912
  Transmission Date: 20161109
  Serious: Yes (Hospitalization)
  Sender: FDA-Public Use
  Company Number: US-BEH-2016073368

PATIENT
  Age: 72 Year
  Sex: Male
  Weight: 96.6 kg

DRUGS (25)
  1. FUROSEMIDE. [Concomitant]
     Active Substance: FUROSEMIDE
  2. NORVASC [Concomitant]
     Active Substance: AMLODIPINE BESYLATE
  3. OMEPRAZOLE. [Concomitant]
     Active Substance: OMEPRAZOLE
  4. MAGNESIUM [Concomitant]
     Active Substance: MAGNESIUM
  5. ALIGN [Concomitant]
     Active Substance: BIFIDOBACTERIUM LONGUM SUBSP. INFANTIS
  6. MULTIVITAMIN                       /00097801/ [Concomitant]
     Active Substance: VITAMINS
  7. RHINOCORT                          /00212602/ [Concomitant]
  8. LUTEIN                             /01638501/ [Concomitant]
     Active Substance: LUTEIN
  9. HIZENTRA [Suspect]
     Active Substance: HUMAN IMMUNOGLOBULIN G
     Indication: IMMUNODEFICIENCY COMMON VARIABLE
     Dosage: 10 G, QW
     Route: 058
     Dates: start: 20160516
  10. LIPITOR [Concomitant]
     Active Substance: ATORVASTATIN CALCIUM
  11. TRAMADOL. [Concomitant]
     Active Substance: TRAMADOL
  12. LMX                                /00033401/ [Concomitant]
  13. NITROSTAT [Concomitant]
     Active Substance: NITROGLYCERIN
  14. SELENIUM [Concomitant]
     Active Substance: SELENIUM
  15. GLUCOSAMINE CHONDROITIN            /01430901/ [Concomitant]
  16. METOPROLOL. [Concomitant]
     Active Substance: METOPROLOL
  17. DIPHENHYDRAMINE. [Concomitant]
     Active Substance: DIPHENHYDRAMINE
  18. ENTOCORT [Concomitant]
     Active Substance: BUDESONIDE
  19. EPIPEN [Concomitant]
     Active Substance: EPINEPHRINE
  20. XARELTO [Concomitant]
     Active Substance: RIVAROXABAN
  21. ACETAMINOPHEN. [Concomitant]
     Active Substance: ACETAMINOPHEN
  22. CELEBREX [Concomitant]
     Active Substance: CELECOXIB
  23. ACCUPRIL [Concomitant]
     Active Substance: QUINAPRIL HYDROCHLORIDE
  24. SYNTHROID [Concomitant]
     Active Substance: LEVOTHYROXINE SODIUM
  25. METFORMIN [Concomitant]
     Active Substance: METFORMIN HYDROCHLORIDE

REACTIONS (1)
  - Chest pain [Unknown]

NARRATIVE: CASE EVENT DATE: 20160907
